FAERS Safety Report 11075923 (Version 2)
Quarter: 2016Q2

REPORT INFORMATION
  Report Type: Spontaneous
  Country: US (occurrence: US)
  Receive Date: 20150429
  Receipt Date: 20160616
  Transmission Date: 20160815
  Serious: Yes (Hospitalization, Other)
  Sender: FDA-Public Use
  Company Number: US-009507513-1504USA023712

PATIENT
  Sex: Female

DRUGS (6)
  1. ALENDRONATE SODIUM. [Suspect]
     Active Substance: ALENDRONATE SODIUM
     Indication: OSTEOPOROSIS
     Dosage: 70 MG, QW
     Route: 048
     Dates: start: 20080206, end: 20121222
  2. ALENDRONATE SODIUM. [Suspect]
     Active Substance: ALENDRONATE SODIUM
     Indication: OSTEOPOROSIS
     Dosage: 70 MG, UNKNOWN
     Route: 048
     Dates: start: 20080206, end: 20121222
  3. FOSAMAX [Suspect]
     Active Substance: ALENDRONATE SODIUM
     Dosage: 70 MG, QW
     Route: 048
     Dates: start: 20070119, end: 200802
  4. FOSAMAX PLUS D [Suspect]
     Active Substance: ALENDRONATE SODIUM\CHOLECALCIFEROL
     Indication: OSTEOPOROSIS
     Dosage: 70MG/2800IU
     Route: 048
     Dates: start: 20061219, end: 200701
  5. FOSAMAX [Suspect]
     Active Substance: ALENDRONATE SODIUM
     Indication: OSTEOPOROSIS
     Dosage: 10 MG, QD
     Route: 048
     Dates: start: 19961211, end: 20001020
  6. FOSAMAX [Suspect]
     Active Substance: ALENDRONATE SODIUM
     Dosage: 70 MG, QW
     Route: 048
     Dates: start: 20001020, end: 20061219

REACTIONS (23)
  - Hypertension [Unknown]
  - Onychomycosis [Unknown]
  - Mitral valve prolapse [Unknown]
  - Anaemia of chronic disease [Unknown]
  - Bundle branch block right [Unknown]
  - Dyslipidaemia [Unknown]
  - Type V hyperlipidaemia [Unknown]
  - Drug hypersensitivity [Unknown]
  - Rib deformity [Unknown]
  - Low turnover osteopathy [Unknown]
  - Foot operation [Unknown]
  - Limb operation [Unknown]
  - Insomnia [Unknown]
  - Ankle operation [Unknown]
  - Depression [Unknown]
  - Femur fracture [Unknown]
  - Toothache [Unknown]
  - Myocardial ischaemia [Unknown]
  - Joint surgery [Unknown]
  - Blood urea increased [Unknown]
  - Hepatic enzyme increased [Unknown]
  - Arthropathy [Unknown]
  - Fatigue [Unknown]

NARRATIVE: CASE EVENT DATE: 1998
